FAERS Safety Report 14619700 (Version 3)
Quarter: 2018Q2

REPORT INFORMATION
  Report Type: Report from Study
  Country: US (occurrence: US)
  Receive Date: 20180309
  Receipt Date: 20180405
  Transmission Date: 20180711
  Serious: Yes (Hospitalization, Other)
  Sender: FDA-Public Use
  Company Number: US-BAYER-2018-024542

PATIENT
  Age: 63 Year
  Sex: Female

DRUGS (2)
  1. STIVARGA [Suspect]
     Active Substance: REGORAFENIB
     Indication: COLON CANCER
     Dosage: 40 MG
     Route: 048
  2. STIVARGA [Suspect]
     Active Substance: REGORAFENIB
     Indication: COLORECTAL CANCER
     Dosage: 160 MG, QD
     Route: 048
     Dates: start: 20180124

REACTIONS (18)
  - Stomatitis [None]
  - Pain [None]
  - Insomnia [Not Recovered/Not Resolved]
  - Blister [None]
  - Limb injury [None]
  - Gait inability [None]
  - Night sweats [Not Recovered/Not Resolved]
  - Pyrexia [Not Recovered/Not Resolved]
  - Tongue injury [None]
  - Fatigue [None]
  - Limb discomfort [None]
  - Neuropathy peripheral [None]
  - Drug dose omission [None]
  - Glossodynia [None]
  - Hyperhidrosis [None]
  - Chills [None]
  - Night sweats [None]
  - Back pain [None]

NARRATIVE: CASE EVENT DATE: 201802
